FAERS Safety Report 9286786 (Version 1)
Quarter: 2012Q4

REPORT INFORMATION
  Report Type: Spontaneous
  Country: GB (occurrence: None)
  Receive Date: 20120913
  Receipt Date: 20120913
  Transmission Date: 20130627
  Serious: Yes (Other)
  Sender: FDA-Public Use
  Company Number: GER/UKI/12/0024418

PATIENT
  Age: 73 Year
  Sex: Male
  Weight: 74 kg

DRUGS (4)
  1. ATORVASTATIN (ATORVASTATIN) [Suspect]
     Indication: NIDDM
     Route: 048
     Dates: start: 200909, end: 201205
  2. CLOPIDGOREL (CLOPIDOGREL) [Concomitant]
  3. METFORMIN (METFORMIN) [Concomitant]
  4. TAMSULOSIN (TAMSULOSIN) [Concomitant]

REACTIONS (2)
  - Memory impairment [None]
  - Aphasia [None]
